FAERS Safety Report 7408083-1 (Version None)
Quarter: 2011Q2

REPORT INFORMATION
  Report Type: 
  Country: None (occurrence: None)
  Receive Date: 20110408
  Receipt Date: 20110408
  Transmission Date: 20111010
  Serious: No
  Sender: FDA-Public Use
  Company Number: None

PATIENT
  Age: 42 Year
  Sex: Female
  Weight: 70.3075 kg

DRUGS (2)
  1. I.V. PREP ANTISEPTIC WIPES 70% IPA SMITH + NEPHEW [Suspect]
     Indication: THERAPEUTIC SKIN CARE TOPICAL
     Dosage: 1 WIPE EVERY 3 DAYS TOP
     Route: 061
     Dates: start: 20100416, end: 20110407
  2. I.V. PREP ANTISEPTIC WIPES 70% IPA SMITH + NEPHEW [Suspect]

REACTIONS (3)
  - INJECTION SITE INFECTION [None]
  - PRODUCT QUALITY ISSUE [None]
  - APPLICATION SITE ABSCESS [None]
